FAERS Safety Report 15593625 (Version 3)
Quarter: 2019Q3

REPORT INFORMATION
  Report Type: Spontaneous
  Country: CA (occurrence: CA)
  Receive Date: 20181107
  Receipt Date: 20190920
  Transmission Date: 20191004
  Serious: Yes (Other)
  Sender: FDA-Public Use
  Company Number: CA-CELLTRION INC.-2018CA021632

PATIENT

DRUGS (17)
  1. INFLECTRA [Suspect]
     Active Substance: INFLIXIMAB-DYYB
     Indication: CROHN^S DISEASE
     Dosage: 522 MG, EVERY (Q) 0, 2, 6 WEEKS, THEN EVERY 8 WEEKS
     Route: 042
     Dates: start: 20170710, end: 20180530
  2. INFLECTRA [Suspect]
     Active Substance: INFLIXIMAB-DYYB
     Dosage: 575 MG, EVERY 8 WEEKS
     Route: 042
     Dates: start: 20180919
  3. INFLECTRA [Suspect]
     Active Substance: INFLIXIMAB-DYYB
     Dosage: 575 MG, EVERY 8 WEEKS
     Route: 042
     Dates: start: 20181217
  4. METHOTREXATE. [Concomitant]
     Active Substance: METHOTREXATE
     Indication: CONDITION AGGRAVATED
     Dosage: 25 MG, WEEKLY
     Route: 048
     Dates: start: 201509
  5. METHOTREXATE. [Concomitant]
     Active Substance: METHOTREXATE
     Dosage: 15 MG, WEEKLY
     Route: 048
     Dates: start: 201509
  6. INFLECTRA [Suspect]
     Active Substance: INFLIXIMAB-DYYB
     Dosage: 575 MG, EVERY 8 WEEKS
     Route: 042
     Dates: start: 20181106
  7. INFLECTRA [Suspect]
     Active Substance: INFLIXIMAB-DYYB
     Dosage: 575 MG, EVERY 6 WEEKS
     Route: 042
     Dates: start: 20190906
  8. ACETAMINOPHEN. [Concomitant]
     Active Substance: ACETAMINOPHEN
     Dosage: UNK
  9. TAPENTADOL [Concomitant]
     Active Substance: TAPENTADOL
     Indication: PAIN
     Dosage: 50 MG 1 TABLET TWICE DAILY
     Dates: start: 20170629
  10. INFLECTRA [Suspect]
     Active Substance: INFLIXIMAB-DYYB
     Dosage: 522 MG, EVERY (Q) 0, 2, 6 WEEKS, THEN EVERY 8 WEEKS
     Route: 042
     Dates: start: 20180404
  11. INFLECTRA [Suspect]
     Active Substance: INFLIXIMAB-DYYB
     Dosage: 516 MG, EVERY 8 WEEKS
     Route: 042
     Dates: start: 20180725
  12. INFLECTRA [Suspect]
     Active Substance: INFLIXIMAB-DYYB
     Dosage: 575 MG, EVERY 8 WEEKS
     Route: 042
     Dates: start: 20190311
  13. PERCOCET [OXYCODONE HYDROCHLORIDE;OXYCODONE TEREPHTHALATE;PARACETAMOL] [Concomitant]
     Active Substance: ACETAMINOPHEN\OXYCODONE HYDROCHLORIDE\OXYCODONE TEREPHTHALATE
     Indication: BACK PAIN
     Dosage: 4 (DF) TABS OF 5/325 MG( DAILY)
     Route: 048
  14. INFLECTRA [Suspect]
     Active Substance: INFLIXIMAB-DYYB
     Dosage: 515 MG, EVERY 8 WEEKS
     Route: 042
     Dates: start: 20180725, end: 20180725
  15. INFLECTRA [Suspect]
     Active Substance: INFLIXIMAB-DYYB
     Dosage: 575 MG, EVERY 6 WEEKS
     Route: 042
     Dates: start: 20190715
  16. INFLECTRA [Suspect]
     Active Substance: INFLIXIMAB-DYYB
     Dosage: 522 MG, EVERY (Q) 0, 2, 6 WEEKS, THEN EVERY 8 WEEKS
     Route: 042
     Dates: start: 20180530, end: 20180530
  17. INFLECTRA [Suspect]
     Active Substance: INFLIXIMAB-DYYB
     Dosage: 575 MG, EVERY 8 WEEKS
     Route: 042
     Dates: start: 20190422

REACTIONS (11)
  - Inappropriate schedule of product administration [Unknown]
  - Polyarthritis [Unknown]
  - Headache [Unknown]
  - Drug ineffective [Unknown]
  - Weight increased [Unknown]
  - Heart rate increased [Unknown]
  - Hypertension [Unknown]
  - Underdose [Unknown]
  - Therapeutic response shortened [Unknown]
  - Off label use [Unknown]
  - Condition aggravated [Recovering/Resolving]

NARRATIVE: CASE EVENT DATE: 2018
